FAERS Safety Report 5092918-4 (Version None)
Quarter: 2006Q3

REPORT INFORMATION
  Report Type: 
  Country: None (occurrence: None)
  Receive Date: 20060830
  Receipt Date: 20050805
  Transmission Date: 20061208
  Serious: No
  Sender: FDA-Public Use
  Company Number: US-BRISTOL-MYERS SQUIBB COMPANY-13064993

PATIENT
  Sex: Female
  Weight: 56 kg

DRUGS (2)
  1. LAC-HYDRIN [Suspect]
     Indication: HYPERKERATOSIS
     Route: 061
     Dates: start: 20050503
  2. SYNTHROID [Concomitant]

REACTIONS (2)
  - NAIL DISCOLOURATION [None]
  - UNEVALUABLE EVENT [None]
